FAERS Safety Report 6244057-4 (Version None)
Quarter: 2009Q2

REPORT INFORMATION
  Report Type: 
  Country: None (occurrence: None)
  Receive Date: 20090618
  Receipt Date: 20090407
  Transmission Date: 20091009
  Serious: No
  Sender: FDA-Public Use
  Company Number: 2009US000004

PATIENT
  Age: 81 Year
  Sex: Female

DRUGS (26)
  1. ENTEREG [Suspect]
     Indication: POSTOPERATIVE ILEUS
     Dosage: 12 MG;PO
     Route: 048
     Dates: start: 20090310, end: 20090318
  2. UNASYN [Concomitant]
  3. BISACODYL [Concomitant]
  4. DEMEROL [Concomitant]
  5. POTASSIUM CHLORIDE [Concomitant]
  6. BENADRYL [Concomitant]
  7. EPHEDRINE [Concomitant]
  8. LASIX [Concomitant]
  9. FENTANYL-100 [Concomitant]
  10. HEPARIN [Concomitant]
  11. LR [Concomitant]
  12. SYNTHROID [Concomitant]
  13. REGLAN [Concomitant]
  14. VERSED [Concomitant]
  15. MIRALAX [Concomitant]
  16. MORPHINE [Concomitant]
  17. NALBUPHINE [Concomitant]
  18. NARCAN [Concomitant]
  19. ZOFRAN [Concomitant]
  20. ZANTAC [Concomitant]
  21. ERYTHROMYCIN [Concomitant]
  22. NEOMYCIN [Concomitant]
  23. XALATAN [Concomitant]
  24. PHENERGAN [Concomitant]
  25. TYLENOL (CAPLET) [Concomitant]
  26. ZEMURON [Concomitant]

REACTIONS (1)
  - POSTOPERATIVE ILEUS [None]
